FAERS Safety Report 20062364 (Version 1)
Quarter: 2021Q4

REPORT INFORMATION
  Report Type: Report from Study
  Country: GB (occurrence: GB)
  Receive Date: 20211112
  Receipt Date: 20211112
  Transmission Date: 20220303
  Serious: Yes (Hospitalization)
  Sender: FDA-Public Use
  Company Number: GB-TEVA-2021-GB-1976567

PATIENT
  Sex: Female

DRUGS (1)
  1. OCTREOTIDE [Suspect]
     Active Substance: OCTREOTIDE
     Dosage: DATE OF LAST ADMINISTRATION: 08-OCT-2021
     Route: 065

REACTIONS (1)
  - Cerebrovascular accident [Unknown]
